FAERS Safety Report 10155749 (Version 2)
Quarter: 2014Q2

REPORT INFORMATION
  Report Type: Report from Study
  Country: US (occurrence: US)
  Receive Date: 20140506
  Receipt Date: 20140506
  Transmission Date: 20141212
  Serious: Yes (Other)
  Sender: FDA-Public Use
  Company Number: PHEH2014US006502

PATIENT
  Age: 17 Year
  Sex: Female
  Weight: 70.3 kg

DRUGS (9)
  1. TOBI PODHALER [Suspect]
     Indication: CYSTIC FIBROSIS
     Dosage: 300 MG, (300MG/5ML), BID
     Route: 055
  2. TOBI PODHALER [Suspect]
     Indication: LUNG DISORDER
     Dosage: 1 DF, BID
     Route: 055
     Dates: start: 20140329
  3. ALBUTEROL [Concomitant]
     Indication: CYSTIC FIBROSIS
     Dosage: (EVERY 4 HOURS) PRN
     Route: 055
  4. ADEX [Concomitant]
     Dosage: UNK UKN, UNK
  5. CIPROFLOXACIN [Concomitant]
     Dosage: UNK UKN, UNK
     Route: 048
  6. ZITHROMAX [Concomitant]
     Indication: CYSTIC FIBROSIS
     Dosage: 500 MG, UNK
     Route: 048
  7. PULMOZYME [Concomitant]
     Indication: CYSTIC FIBROSIS
     Dosage: 2.5 MG (DAILY)
     Route: 055
  8. ADVAIR [Concomitant]
     Indication: CYSTIC FIBROSIS
     Dosage: 1 DF, (250/50, 1 PUFF BID)
     Route: 055
  9. ADVAIR [Concomitant]
     Indication: ASTHMA

REACTIONS (5)
  - Cystic fibrosis [Unknown]
  - Condition aggravated [Unknown]
  - Viral infection [Unknown]
  - Nasopharyngitis [Recovered/Resolved]
  - Asthma [Recovered/Resolved]
